FAERS Safety Report 17975096 (Version 1)
Quarter: 2020Q3

REPORT INFORMATION
  Report Type: Spontaneous
  Country: GB (occurrence: GB)
  Receive Date: 20200702
  Receipt Date: 20200702
  Transmission Date: 20201103
  Serious: Yes (Hospitalization, Disabling)
  Sender: FDA-Public Use
  Company Number: GB-TEVA-2020-GB-1794038

PATIENT
  Age: 46 Year
  Sex: Male
  Weight: 82.55 kg

DRUGS (17)
  1. BISOPROLOL [Concomitant]
     Active Substance: BISOPROLOL
  2. LINEZOLID. [Suspect]
     Active Substance: LINEZOLID
     Dosage: 1200 MG
     Route: 048
  3. AMIKACIN. [Concomitant]
     Active Substance: AMIKACIN
     Route: 042
  4. ETHAMBUTOL [Concomitant]
     Active Substance: ETHAMBUTOL HYDROCHLORIDE
  5. RIFAMPICIN [Concomitant]
     Active Substance: RIFAMPIN
  6. OMEPRAZOLE. [Concomitant]
     Active Substance: OMEPRAZOLE
  7. IMIPENEM [Concomitant]
     Active Substance: IMIPENEM
  8. LEVOFLOXACIN. [Concomitant]
     Active Substance: LEVOFLOXACIN
  9. COTRIMOXAZOLE [Concomitant]
     Active Substance: SULFAMETHOXAZOLE\TRIMETHOPRIM
  10. ONDANSETRON [Concomitant]
     Active Substance: ONDANSETRON
  11. ACETYLSALICYLIC ACID [Concomitant]
     Active Substance: ASPIRIN
  12. COLECALCIFEROL [Concomitant]
     Active Substance: CHOLECALCIFEROL
  13. DAPTOMYCIN. [Concomitant]
     Active Substance: DAPTOMYCIN
  14. SENNOSIDES. [Concomitant]
     Active Substance: SENNOSIDES
  15. MOXIFLOXACIN. [Concomitant]
     Active Substance: MOXIFLOXACIN
  16. LINEZOLID. [Suspect]
     Active Substance: LINEZOLID
     Indication: ENDOCARDITIS
     Dosage: (HIGHER DOSE BASED ON THERAPEUTIC DRUG MONITORING: ON RIFAMPICIN AND SUBTHERAPEUTIC ON BD)?UNIT DOSE
     Route: 048
     Dates: start: 20191121, end: 20200410
  17. CLARITHROMYCIN. [Concomitant]
     Active Substance: CLARITHROMYCIN

REACTIONS (3)
  - Neuralgia [Unknown]
  - Axonal neuropathy [Unknown]
  - Neuropathy peripheral [Not Recovered/Not Resolved]

NARRATIVE: CASE EVENT DATE: 20200406
